FAERS Safety Report 13719765 (Version 1)
Quarter: 2017Q3

REPORT INFORMATION
  Report Type: Spontaneous
  Country: US (occurrence: US)
  Receive Date: 20170705
  Receipt Date: 20170705
  Transmission Date: 20171127
  Serious: No
  Sender: FDA-Public Use
  Company Number: US-TEVA-782555ACC

PATIENT
  Age: 24 Year
  Sex: Female

DRUGS (1)
  1. PLAN B [Suspect]
     Active Substance: LEVONORGESTREL
     Route: 048
     Dates: start: 20170621, end: 20170621

REACTIONS (1)
  - Vaginal haemorrhage [Not Recovered/Not Resolved]
